FAERS Safety Report 19489410 (Version 1)
Quarter: 2021Q3

REPORT INFORMATION
  Report Type: Spontaneous
  Country: FR (occurrence: FR)
  Receive Date: 20210703
  Receipt Date: 20210703
  Transmission Date: 20211014
  Serious: Yes (Hospitalization)
  Sender: FDA-Public Use
  Company Number: FR-TEVA-2021-FR-1928473

PATIENT
  Age: 67 Year
  Sex: Male
  Weight: 125 kg

DRUGS (1)
  1. ROSUVASTATINE [Suspect]
     Active Substance: ROSUVASTATIN
     Indication: DYSLIPIDAEMIA
     Dosage: 5MG
     Route: 048
     Dates: start: 20201129, end: 20210222

REACTIONS (1)
  - Necrotising myositis [Recovering/Resolving]

NARRATIVE: CASE EVENT DATE: 20210428
